FAERS Safety Report 8398836-8 (Version None)
Quarter: 2012Q2

REPORT INFORMATION
  Report Type: 
  Country: None (occurrence: None)
  Receive Date: 20120531
  Receipt Date: 20120523
  Transmission Date: 20120825
  Serious: Yes (Death, Hospitalization)
  Sender: FDA-Public Use
  Company Number: RO-SANOFI-AVENTIS-2012SA037809

PATIENT
  Age: 51 Year
  Sex: Male
  Weight: 76 kg

DRUGS (4)
  1. NEULASTA [Suspect]
     Indication: PROPHYLAXIS
     Route: 058
     Dates: start: 20120412
  2. CISPLATIN [Suspect]
     Indication: CHEMOTHERAPY
     Route: 042
     Dates: start: 20120409, end: 20120409
  3. FLUOROURACIL [Suspect]
     Indication: CHEMOTHERAPY
     Route: 042
     Dates: start: 20120406, end: 20120410
  4. TAXOTERE [Suspect]
     Indication: CHEMOTHERAPY
     Route: 042
     Dates: start: 20120409, end: 20120409

REACTIONS (6)
  - THROMBOCYTOPENIA [None]
  - DEHYDRATION [None]
  - LEUKOPENIA [None]
  - HYPOTENSION [None]
  - NEUTROPENIA [None]
  - GENERAL PHYSICAL CONDITION ABNORMAL [None]
